FAERS Safety Report 23563751 (Version 4)
Quarter: 2025Q3

REPORT INFORMATION
  Report Type: Report from Study
  Country: CA (occurrence: CA)
  Receive Date: 20240226
  Receipt Date: 20250723
  Transmission Date: 20251020
  Serious: Yes (Hospitalization, Other)
  Sender: TAKEDA
  Company Number: CA-TAKEDA-2023TUS114657

PATIENT
  Sex: Female

DRUGS (20)
  1. VEDOLIZUMAB [Suspect]
     Active Substance: VEDOLIZUMAB
     Indication: Crohn^s disease
  2. VEDOLIZUMAB [Suspect]
     Active Substance: VEDOLIZUMAB
     Dosage: 300 MILLIGRAM, Q4WEEKS
     Dates: start: 20200109
  3. VEDOLIZUMAB [Suspect]
     Active Substance: VEDOLIZUMAB
     Dosage: 300 MILLIGRAM, Q4WEEKS
  4. VEDOLIZUMAB [Suspect]
     Active Substance: VEDOLIZUMAB
     Dosage: 300 MILLIGRAM, Q4WEEKS
  5. CITALOPRAM [Concomitant]
     Active Substance: CITALOPRAM
  6. METOPROLOL [Concomitant]
     Active Substance: METOPROLOL
  7. DIGOXIN [Concomitant]
     Active Substance: DIGOXIN
  8. ARIPIPRAZOLE [Concomitant]
     Active Substance: ARIPIPRAZOLE
  9. CHOLECALCIFEROL [Concomitant]
     Active Substance: CHOLECALCIFEROL
  10. INCRUSE ELLIPTA [Concomitant]
     Active Substance: UMECLIDINIUM BROMIDE
  11. MONTELUKAST SODIUM [Concomitant]
     Active Substance: MONTELUKAST SODIUM
  12. ROSUVASTATIN CALCIUM [Concomitant]
     Active Substance: ROSUVASTATIN CALCIUM
  13. QUETIAPINE [Concomitant]
     Active Substance: QUETIAPINE
  14. TOVIAZ [Concomitant]
     Active Substance: FESOTERODINE FUMARATE
  15. PANTOPRAZOLE SODIUM [Concomitant]
     Active Substance: PANTOPRAZOLE SODIUM
  16. BUPROPION [Concomitant]
     Active Substance: BUPROPION
  17. PREGABALIN [Concomitant]
     Active Substance: PREGABALIN
  18. ELIQUIS [Concomitant]
     Active Substance: APIXABAN
  19. CEFUROXIME [Concomitant]
     Active Substance: CEFUROXIME
  20. PREDNISONE [Concomitant]
     Active Substance: PREDNISONE

REACTIONS (3)
  - Pneumonia [Unknown]
  - Bronchitis [Recovering/Resolving]
  - Productive cough [Not Recovered/Not Resolved]
